FAERS Safety Report 23808151 (Version 3)
Quarter: 2024Q2

REPORT INFORMATION
  Report Type: Spontaneous
  Country: US (occurrence: US)
  Receive Date: 20240502
  Receipt Date: 20240617
  Transmission Date: 20240717
  Serious: No
  Sender: FDA-Public Use
  Company Number: US-GSKCCFUS-Case-01992315_AE-110607

PATIENT
  Sex: Female

DRUGS (1)
  1. BENLYSTA [Suspect]
     Active Substance: BELIMUMAB
     Indication: Product used for unknown indication
     Dosage: UNK
     Dates: start: 20240415

REACTIONS (5)
  - Exposure via skin contact [Unknown]
  - Injection site pain [Unknown]
  - Accidental exposure to product [Unknown]
  - Incorrect dose administered [Unknown]
  - Product complaint [Unknown]
